FAERS Safety Report 4805678-6 (Version None)
Quarter: 2005Q4

REPORT INFORMATION
  Report Type: 
  Country: None (occurrence: None)
  Receive Date: 20051018
  Receipt Date: 20051007
  Transmission Date: 20060501
  Serious: Yes (Hospitalization, Other)
  Sender: FDA-Public Use
  Company Number: USA-2003-0010608

PATIENT
  Age: 53 Year
  Sex: Female
  Weight: 72.6 kg

DRUGS (12)
  1. OXYCONTIN [Suspect]
     Indication: PAIN
     Dosage: 40 MG, BID, ORAL
     Route: 048
  2. OXYCODONE HCL [Concomitant]
  3. TOPROL-XL [Concomitant]
  4. XANAX [Concomitant]
  5. ALDACTAZIDE (SPIRONOLACTONE, HYDROCHLOROTHIAZIDE) [Concomitant]
  6. NORVASC [Concomitant]
  7. VICODIN [Concomitant]
  8. ASPIRIN [Concomitant]
  9. CELEXA [Concomitant]
  10. BACLOFEN [Concomitant]
  11. PERCOCET [Concomitant]
  12. NEURONTIN [Concomitant]

REACTIONS (64)
  - AMNESIA [None]
  - ANHEDONIA [None]
  - ANOREXIA [None]
  - ANXIETY [None]
  - APATHY [None]
  - ARTHRALGIA [None]
  - BILE DUCT STENOSIS [None]
  - BRONCHITIS [None]
  - CHEST PAIN [None]
  - CONSTIPATION [None]
  - COUGH [None]
  - CRYING [None]
  - DECREASED APPETITE [None]
  - DEHYDRATION [None]
  - DEPRESSION [None]
  - DIARRHOEA [None]
  - DISTURBANCE IN ATTENTION [None]
  - DIZZINESS [None]
  - DRUG DEPENDENCE [None]
  - DRUG INEFFECTIVE [None]
  - DRUG TOLERANCE [None]
  - DRUG WITHDRAWAL SYNDROME [None]
  - DYSPNOEA [None]
  - DYSPNOEA EXERTIONAL [None]
  - FATIGUE [None]
  - FEELING HOT [None]
  - FEELING HOT AND COLD [None]
  - FEELING JITTERY [None]
  - HEADACHE [None]
  - HEART RATE INCREASED [None]
  - HEPATOMEGALY [None]
  - HOT FLUSH [None]
  - HYPERACUSIS [None]
  - HYPERHIDROSIS [None]
  - HYPOAESTHESIA [None]
  - INADEQUATE ANALGESIA [None]
  - INSOMNIA [None]
  - IRRITABILITY [None]
  - KETONURIA [None]
  - LEUKOCYTOSIS [None]
  - LIBIDO DECREASED [None]
  - LUNG INFILTRATION [None]
  - MUSCULOSKELETAL STIFFNESS [None]
  - MYALGIA [None]
  - MYOFASCIAL PAIN SYNDROME [None]
  - NAUSEA [None]
  - OEDEMA [None]
  - OEDEMA PERIPHERAL [None]
  - ORTHOPNOEA [None]
  - PAIN [None]
  - PAIN IN EXTREMITY [None]
  - PANCREATIC MASS [None]
  - PANCREATITIS CHRONIC [None]
  - PARAESTHESIA [None]
  - PHOTOPHOBIA [None]
  - PNEUMONIA PRIMARY ATYPICAL [None]
  - RESPIRATORY RATE INCREASED [None]
  - SHOULDER PAIN [None]
  - SOCIAL AVOIDANT BEHAVIOUR [None]
  - TEARFULNESS [None]
  - URINARY TRACT INFECTION [None]
  - WEIGHT DECREASED [None]
  - WEIGHT INCREASED [None]
  - WHEEZING [None]
